FAERS Safety Report 11792540 (Version 4)
Quarter: 2021Q1

REPORT INFORMATION
  Report Type: Spontaneous
  Country: US (occurrence: US)
  Receive Date: 20151202
  Receipt Date: 20210302
  Transmission Date: 20210419
  Serious: Yes (Other)
  Sender: FDA-Public Use
  Company Number: US-ROCHE-1667027

PATIENT
  Sex: Female

DRUGS (17)
  1. QUINAPRIL. [Concomitant]
     Active Substance: QUINAPRIL
  2. BENZONATATE. [Concomitant]
     Active Substance: BENZONATATE
  3. ASPIRIN 81 [Concomitant]
     Active Substance: ASPIRIN
  4. FUROSEMIDE. [Concomitant]
     Active Substance: FUROSEMIDE
  5. VERAPAMIL [Concomitant]
     Active Substance: VERAPAMIL HYDROCHLORIDE
  6. ONDANSETRON [Concomitant]
     Active Substance: ONDANSETRON
  7. CEPHALEXIN. [Concomitant]
     Active Substance: CEPHALEXIN
  8. PLAVIX [Concomitant]
     Active Substance: CLOPIDOGREL BISULFATE
  9. ERIVEDGE [Suspect]
     Active Substance: VISMODEGIB
     Indication: BASAL CELL CARCINOMA
     Dosage: RESTARTED ON AN UNSPECIFIED DATE?TAKE ONE CAPSULE BY MOUTH DAILY FOR 1 WEEK PER MONTH
     Route: 048
  10. HYDROCHLOROTHIAZID [Concomitant]
     Active Substance: HYDROCHLOROTHIAZIDE
  11. MULTAQ [Concomitant]
     Active Substance: DRONEDARONE
  12. ACCUPRIL [Concomitant]
     Active Substance: QUINAPRIL HYDROCHLORIDE
  13. ACETAMINOPHEN. [Concomitant]
     Active Substance: ACETAMINOPHEN
  14. FAMOTIDINE. [Concomitant]
     Active Substance: FAMOTIDINE
  15. CARVEDILOL. [Concomitant]
     Active Substance: CARVEDILOL
  16. SPIRONOLACTON [Concomitant]
     Active Substance: SPIRONOLACTONE
  17. CRESTOR [Concomitant]
     Active Substance: ROSUVASTATIN CALCIUM

REACTIONS (4)
  - Stomatitis [Recovered/Resolved]
  - Paraesthesia oral [Recovering/Resolving]
  - Ageusia [Recovered/Resolved]
  - Pain in extremity [Unknown]
